FAERS Safety Report 18200667 (Version 2)
Quarter: 2022Q2

REPORT INFORMATION
  Report Type: Spontaneous
  Country: DE (occurrence: DE)
  Receive Date: 20200827
  Receipt Date: 20220405
  Transmission Date: 20220720
  Serious: Yes (Death, Other)
  Sender: FDA-Public Use
  Company Number: ALC2019DE003569

PATIENT

DRUGS (2)
  1. DEXAMETHASONE [Suspect]
     Active Substance: DEXAMETHASONE
     Indication: Spinal pain
     Dosage: 1 DF, QD
     Route: 030
     Dates: start: 20160324
  2. DICLOFENAC SODIUM [Suspect]
     Active Substance: DICLOFENAC SODIUM
     Indication: Spinal pain
     Dosage: 1 DF, QD
     Route: 030
     Dates: start: 20160324

REACTIONS (4)
  - Anaphylactic shock [Fatal]
  - Contraindicated product administered [Fatal]
  - Medication error [Fatal]
  - Circulatory collapse [Fatal]

NARRATIVE: CASE EVENT DATE: 20160324
